FAERS Safety Report 6568679-6 (Version None)
Quarter: 2010Q1

REPORT INFORMATION
  Report Type: 
  Country: None (occurrence: None)
  Receive Date: 20100203
  Receipt Date: 20100122
  Transmission Date: 20100710
  Serious: Yes (Hospitalization, Disabling, Other)
  Sender: FDA-Public Use
  Company Number: PHEH2008US08147

PATIENT
  Sex: Female

DRUGS (28)
  1. ZELNORM [Suspect]
     Dosage: 6 MG, UNK
     Route: 048
  2. COZAAR [Concomitant]
  3. KLONOPIN [Concomitant]
  4. MIRALAX [Concomitant]
  5. PROTONIX [Concomitant]
  6. ZETIA [Concomitant]
  7. FLONASE [Concomitant]
  8. PLAVIX [Concomitant]
  9. DIOVAN [Concomitant]
  10. SYNTHROID [Concomitant]
  11. SEREVENT [Concomitant]
  12. CLARITIN [Concomitant]
  13. FLOVENT [Concomitant]
  14. ALBUTEROL [Concomitant]
  15. INSULIN [Concomitant]
     Indication: DIABETES MELLITUS
  16. METFORMIN HCL [Concomitant]
  17. TORSEMIDE [Concomitant]
  18. ISOSORBIDE [Concomitant]
  19. LASIX [Concomitant]
  20. ALDACTONE [Concomitant]
  21. TOPROL-XL [Concomitant]
  22. FLEXERIL [Concomitant]
  23. REGLAN [Concomitant]
  24. SPIRIVA [Concomitant]
  25. POTASSIUM CHLORIDE [Concomitant]
  26. RANEXA [Concomitant]
  27. MUCINEX [Concomitant]
  28. TUSSIONEX [Concomitant]

REACTIONS (43)
  - ABDOMINAL PAIN [None]
  - ABDOMINOPLASTY [None]
  - ACUTE MYOCARDIAL INFARCTION [None]
  - ANAEMIA [None]
  - ASTHMA [None]
  - BACK PAIN [None]
  - BRONCHITIS [None]
  - CARDIAC FAILURE CONGESTIVE [None]
  - CARDIOMEGALY [None]
  - CATHETERISATION CARDIAC [None]
  - CHEST PAIN [None]
  - CHRONIC OBSTRUCTIVE PULMONARY DISEASE [None]
  - COLON POLYPECTOMY [None]
  - CORONARY ARTERY DISEASE [None]
  - DEPRESSED MOOD [None]
  - DIARRHOEA [None]
  - DIVERTICULUM [None]
  - DUODENAL ULCER [None]
  - DUODENITIS [None]
  - DYSPNOEA [None]
  - EMOTIONAL DISTRESS [None]
  - GASTRITIS [None]
  - GASTROOESOPHAGEAL REFLUX DISEASE [None]
  - GENERALISED ANXIETY DISORDER [None]
  - HYPERLIPIDAEMIA [None]
  - HYPERTENSION [None]
  - HYPOTHYROIDISM [None]
  - INJURY [None]
  - INSOMNIA [None]
  - MITRAL VALVE INCOMPETENCE [None]
  - NAUSEA [None]
  - OEDEMA PERIPHERAL [None]
  - OSTEOPENIA [None]
  - PAIN [None]
  - PALPITATIONS [None]
  - PNEUMONIA [None]
  - POLYMYALGIA RHEUMATICA [None]
  - POLYMYOSITIS [None]
  - SLEEP APNOEA SYNDROME [None]
  - SPONDYLOLISTHESIS [None]
  - TYPE 2 DIABETES MELLITUS [None]
  - VERTIGO [None]
  - VOMITING [None]
